FAERS Safety Report 10530201 (Version 1)
Quarter: 2014Q4

REPORT INFORMATION
  Report Type: Spontaneous
  Country: US (occurrence: None)
  Receive Date: 20141020
  Receipt Date: 20141020
  Transmission Date: 20150528
  Serious: No
  Sender: FDA-Public Use
  Company Number: None

PATIENT
  Age: 33 Year
  Sex: Female
  Weight: 86.18 kg

DRUGS (1)
  1. QNASL [Suspect]
     Active Substance: BECLOMETHASONE DIPROPIONATE
     Indication: SINUSITIS
     Dosage: 2 SPRAY PER NOSTRIL ONCE DAILY INHALATION
     Route: 006
     Dates: start: 20141016, end: 20141019

REACTIONS (1)
  - Sinus headache [None]

NARRATIVE: CASE EVENT DATE: 20141016
